FAERS Safety Report 17816365 (Version 1)
Quarter: 2020Q2

REPORT INFORMATION
  Report Type: Spontaneous
  Country: CN (occurrence: CN)
  Receive Date: 20200522
  Receipt Date: 20200522
  Transmission Date: 20200714
  Serious: Yes (Hospitalization)
  Sender: FDA-Public Use
  Company Number: CN-ASTRAZENECA-2020SE66776

PATIENT
  Age: 25174 Day
  Sex: Female
  Weight: 56 kg

DRUGS (3)
  1. LOSEC [Suspect]
     Active Substance: OMEPRAZOLE
     Indication: REGURGITATION
     Route: 048
     Dates: start: 20200418, end: 20200430
  2. LOSEC [Suspect]
     Active Substance: OMEPRAZOLE
     Indication: DYSPEPSIA
     Route: 048
     Dates: start: 20200418, end: 20200430
  3. LOSEC [Suspect]
     Active Substance: OMEPRAZOLE
     Indication: GASTROOESOPHAGEAL REFLUX DISEASE
     Route: 048
     Dates: start: 20200418, end: 20200430

REACTIONS (3)
  - Erythema [Recovering/Resolving]
  - Skin mass [Recovering/Resolving]
  - Pain [Recovering/Resolving]

NARRATIVE: CASE EVENT DATE: 20200501
